FAERS Safety Report 25936194 (Version 1)
Quarter: 2025Q4

REPORT INFORMATION
  Report Type: Spontaneous
  Country: EU (occurrence: EU)
  Receive Date: 20251017
  Receipt Date: 20251017
  Transmission Date: 20260117
  Serious: Yes (Other)
  Sender: pharmaAND
  Company Number: None

PATIENT
  Age: 52 Year
  Sex: Female

DRUGS (1)
  1. PEGASYS [Suspect]
     Active Substance: PEGINTERFERON ALFA-2A
     Dosage: THEN EVERY 19 DAYS
     Route: 058
     Dates: start: 20120901

REACTIONS (1)
  - Vertigo [Recovered/Resolved]

NARRATIVE: CASE EVENT DATE: 20250401
